FAERS Safety Report 20035360 (Version 2)
Quarter: 2021Q4

REPORT INFORMATION
  Report Type: Spontaneous
  Country: US (occurrence: US)
  Receive Date: 20211104
  Receipt Date: 20211116
  Transmission Date: 20220303
  Serious: Yes (Hospitalization)
  Sender: FDA-Public Use
  Company Number: US-TEVA-2021-US-1972587

PATIENT
  Age: 59 Year
  Sex: Female

DRUGS (12)
  1. METHOTREXATE [Suspect]
     Active Substance: METHOTREXATE
     Indication: Acute myeloid leukaemia
     Dosage: 12MG TRIPLE CHEMOTHERAPY
     Route: 037
  2. TACROLIMUS [Suspect]
     Active Substance: TACROLIMUS
     Indication: Acute myeloid leukaemia
     Route: 065
  3. GILTERITINIB [Concomitant]
     Active Substance: GILTERITINIB
     Indication: Acute myeloid leukaemia
     Route: 065
  4. DEXAMETHASONE [Concomitant]
     Active Substance: DEXAMETHASONE
     Indication: Acute myeloid leukaemia
     Route: 065
  5. ACYCLOVIR [Concomitant]
     Active Substance: ACYCLOVIR
     Indication: Prophylaxis
     Route: 065
  6. SULFAMETHOXAZOLE\TRIMETHOPRIM [Concomitant]
     Active Substance: SULFAMETHOXAZOLE\TRIMETHOPRIM
     Indication: Product used for unknown indication
     Route: 065
  7. FLUCONAZOLE [Concomitant]
     Active Substance: FLUCONAZOLE
     Indication: Product used for unknown indication
     Route: 065
  8. CYTARABINE [Concomitant]
     Active Substance: CYTARABINE
     Indication: Acute myeloid leukaemia
     Dosage: 50MG TRIPLE CHEMOTHERAPY
     Route: 037
  9. HYDROCORTISONE [Concomitant]
     Active Substance: HYDROCORTISONE
     Indication: Acute myeloid leukaemia
     Dosage: 50MG TRIPLE CHEMOTHERAPY
     Route: 037
  10. FOLIC ACID [Concomitant]
     Active Substance: FOLIC ACID
     Indication: Neurotoxicity
     Dosage: 1 MILLIGRAM DAILY;
     Route: 042
  11. FOLATE SODIUM [Concomitant]
     Active Substance: FOLATE SODIUM
     Indication: Neurotoxicity
     Dosage: 1 MILLIGRAM DAILY;
     Route: 048
  12. LEUCOVORIN [Concomitant]
     Active Substance: LEUCOVORIN
     Indication: Neurotoxicity
     Dosage: 100 MILLIGRAM DAILY; FOR 2 DAYS
     Route: 042

REACTIONS (2)
  - Posterior reversible encephalopathy syndrome [Unknown]
  - Neurotoxicity [Recovered/Resolved]
